FAERS Safety Report 9753127 (Version 1)
Quarter: 2013Q4

REPORT INFORMATION
  Report Type: Spontaneous
  Country: US (occurrence: US)
  Receive Date: 20131213
  Receipt Date: 20131213
  Transmission Date: 20140711
  Serious: No
  Sender: FDA-Public Use
  Company Number: US-GILEAD-2010-0026349

PATIENT
  Sex: Female
  Weight: 83.91 kg

DRUGS (17)
  1. LETAIRIS [Suspect]
     Indication: PULMONARY ARTERIAL HYPERTENSION
     Route: 048
     Dates: start: 20090728
  2. REVATIO [Concomitant]
  3. AMLODIPINE BESYLATE [Concomitant]
  4. FUROSEMIDE [Concomitant]
  5. SPIRIVA [Concomitant]
  6. ADVAIR [Concomitant]
  7. FLUTICASONE [Concomitant]
  8. ALBUTEROL 0.083% [Concomitant]
  9. SYNTHROID [Concomitant]
  10. PREDNISONE [Concomitant]
  11. HYDROXYCHLOROQUINE [Concomitant]
  12. PANTOPRAZOLE [Concomitant]
  13. SUCRALFATE [Concomitant]
  14. KLOR-CON [Concomitant]
  15. FERROUS SULFATE [Concomitant]
  16. CENTRUM SILVER [Concomitant]
  17. TYLENOL PM EX-STR [Concomitant]

REACTIONS (1)
  - Oedema [Unknown]
